FAERS Safety Report 5136496-X (Version None)
Quarter: 2006Q4

REPORT INFORMATION
  Report Type: 
  Country: None (occurrence: None)
  Receive Date: 20061020
  Receipt Date: 20061012
  Transmission Date: 20070319
  Serious: Yes (Other)
  Sender: FDA-Public Use
  Company Number: 2006-02521

PATIENT
  Age: 60 Year
  Sex: Female

DRUGS (1)
  1. VELCADE [Suspect]
     Indication: MULTIPLE MYELOMA

REACTIONS (3)
  - INTERLEUKIN LEVEL INCREASED [None]
  - TUMOUR LYSIS SYNDROME [None]
  - VOMITING [None]
